FAERS Safety Report 23393778 (Version 1)
Quarter: 2024Q1

REPORT INFORMATION
  Report Type: Spontaneous
  Country: CN (occurrence: CN)
  Receive Date: 20240111
  Receipt Date: 20240111
  Transmission Date: 20240409
  Serious: Yes (Other)
  Sender: FDA-Public Use
  Company Number: CN-ELI_LILLY_AND_COMPANY-CN202401003071

PATIENT
  Age: 44 Year
  Sex: Male

DRUGS (11)
  1. PEMETREXED [Suspect]
     Active Substance: PEMETREXED
     Indication: Lung adenocarcinoma stage III
     Dosage: 500 MG/M2, CYCLE 1
     Route: 041
     Dates: start: 20200111
  2. PEMETREXED [Suspect]
     Active Substance: PEMETREXED
     Dosage: 400 MG/M2, CYCLE 2
     Route: 065
     Dates: start: 20200211, end: 20200213
  3. PEMETREXED [Suspect]
     Active Substance: PEMETREXED
     Dosage: 300 MG/M2, CYCLE 3
     Route: 065
     Dates: start: 20200309
  4. PEMETREXED [Suspect]
     Active Substance: PEMETREXED
     Dosage: 300 MG/M2, CYCLE 4
     Route: 065
  5. CISPLATIN [Suspect]
     Active Substance: CISPLATIN
     Indication: Lung adenocarcinoma stage III
     Dosage: 75 MG/M2, DIVIDED IN 3 DAYS
     Route: 065
     Dates: start: 20200111
  6. CISPLATIN [Suspect]
     Active Substance: CISPLATIN
     Dosage: 60 MG/M2, CYCLE 2
     Route: 065
     Dates: start: 20200211, end: 20200213
  7. CISPLATIN [Suspect]
     Active Substance: CISPLATIN
     Dosage: 50 MG/M2, CYCLE 3
     Route: 065
     Dates: start: 20200309
  8. CISPLATIN [Suspect]
     Active Substance: CISPLATIN
     Dosage: 50 MG/M2, CYCLE 4
     Route: 065
  9. FOLATE SODIUM [Concomitant]
     Active Substance: FOLATE SODIUM
     Indication: Product used for unknown indication
     Dosage: 400 UG/D, UNKNOWN
     Route: 048
  10. CYANOCOBALAMIN [Concomitant]
     Active Substance: CYANOCOBALAMIN
     Indication: Product used for unknown indication
     Dosage: 1000 UG, ON THE DAY OF ADMISSION
     Route: 030
  11. DEXAMETHASONE [Concomitant]
     Active Substance: DEXAMETHASONE
     Indication: Product used for unknown indication
     Dosage: 3.75 MG, BID FOR CONSECUTIVE 3 DAYS 1 DAY BEFORE CHEMOTHERAPY
     Route: 048

REACTIONS (2)
  - Scleroderma-like reaction [Unknown]
  - Myelosuppression [Unknown]

NARRATIVE: CASE EVENT DATE: 20200114
